FAERS Safety Report 20827443 (Version 1)
Quarter: 2022Q2

REPORT INFORMATION
  Report Type: Report from Study
  Country: US (occurrence: US)
  Receive Date: 20220513
  Receipt Date: 20220513
  Transmission Date: 20220721
  Serious: Yes (Hospitalization, Other)
  Sender: FDA-Public Use
  Company Number: US-BRISTOL-MYERS SQUIBB COMPANY-2022-032760

PATIENT
  Age: 69 Year
  Sex: Female
  Weight: 80.90 kg

DRUGS (9)
  1. LUCITANIB [Suspect]
     Active Substance: LUCITANIB
     Indication: Neoplasm malignant
     Dosage: ON AN UNSPECIFIED DATE, PO LUCITANIB DOSE WAS INCREASED TO 10 MG, QD.
     Route: 048
     Dates: start: 20210205, end: 20220426
  2. SYNTHROID [Concomitant]
     Active Substance: LEVOTHYROXINE SODIUM
     Indication: Product used for unknown indication
     Dosage: ONGOING
     Route: 065
     Dates: start: 20220331
  3. TYLENOL [Concomitant]
     Active Substance: ACETAMINOPHEN
     Indication: Product used for unknown indication
     Dosage: ONGOING
     Route: 065
     Dates: start: 20190731
  4. TENORMIN [Concomitant]
     Active Substance: ATENOLOL
     Indication: Product used for unknown indication
     Dosage: ONGOING
     Route: 065
     Dates: start: 20190610
  5. COLCRYS [Concomitant]
     Active Substance: COLCHICINE
     Indication: Product used for unknown indication
     Dosage: ONGOING
     Route: 065
     Dates: start: 20200611
  6. LOVENOX [Concomitant]
     Active Substance: ENOXAPARIN SODIUM
     Indication: Product used for unknown indication
     Dosage: ONGOING
     Route: 065
     Dates: start: 20220324
  7. HYDRODIURIL [Concomitant]
     Active Substance: HYDROCHLOROTHIAZIDE
     Indication: Product used for unknown indication
     Dosage: ONGOING
     Route: 065
     Dates: start: 20190610
  8. ADVIL [Concomitant]
     Active Substance: IBUPROFEN
     Indication: Product used for unknown indication
     Dosage: ONGOING
     Route: 065
     Dates: start: 20190731
  9. GLUCOPHAGE [Concomitant]
     Active Substance: METFORMIN HYDROCHLORIDE
     Indication: Product used for unknown indication
     Dosage: ONGOING
     Route: 065
     Dates: start: 20200516

REACTIONS (2)
  - Pulmonary hypertension [Not Recovered/Not Resolved]
  - Dyspnoea [Not Recovered/Not Resolved]

NARRATIVE: CASE EVENT DATE: 20220426
